FAERS Safety Report 8505181-6 (Version None)
Quarter: 2012Q3

REPORT INFORMATION
  Report Type: 
  Country: None (occurrence: None)
  Receive Date: 20120712
  Receipt Date: 20120702
  Transmission Date: 20120928
  Serious: Yes (Hospitalization)
  Sender: FDA-Public Use
  Company Number: FR-PFIZER INC-2012157827

PATIENT
  Age: 60 Year
  Sex: Male

DRUGS (8)
  1. ELOXATIN [Suspect]
     Indication: COLORECTAL CANCER METASTATIC
     Dosage: 85 MG/M2, IN SPLIT DAILY DOSES FOR 3 DAYS, ALTERNATING WITH FLUOROURACIL, STARTING ON DAY2
     Route: 013
     Dates: start: 20120322
  2. ERBITUX [Suspect]
     Indication: COLORECTAL CANCER METASTATIC
     Dosage: 500 MG/M2, DAY1 (FISRT CYCLE)
     Route: 042
     Dates: start: 20120321
  3. FLUOROURACIL [Suspect]
     Indication: COLORECTAL CANCER METASTATIC
     Dosage: 2800 MG/M2, IN SPLIT DAILY DOSES FOR 3 DAYS, ALTERNATING WITH OXALIPLATIN INFUSION, STARTING ON DAY2
     Route: 013
     Dates: start: 20120322
  4. ELOXATIN [Suspect]
     Dosage: 85 MG/M2 EVERY DAY
     Route: 013
     Dates: start: 20120512, end: 20120515
  5. IRINOTECAN HCL [Suspect]
     Indication: COLORECTAL CANCER METASTATIC
     Dosage: 180 MG/M2, DAY2 (FIRST CYCLE)
     Route: 013
     Dates: start: 20120322
  6. IRINOTECAN HCL [Suspect]
     Dosage: 180 MG/M2 (FOURTH CYCLE)
     Route: 013
     Dates: start: 20120512, end: 20120512
  7. ERBITUX [Suspect]
     Dosage: 500 MG/M2 EVERY DAY (FOURTH CYCLE)
     Route: 042
     Dates: start: 20120511, end: 20120511
  8. FLUOROURACIL [Suspect]
     Dosage: 2800 MG/M2 EVERY DAY
     Route: 013
     Dates: start: 20120512, end: 20120515

REACTIONS (2)
  - DEVICE RELATED INFECTION [None]
  - CATHETER SITE HAEMORRHAGE [None]
